FAERS Safety Report 7020826-8 (Version None)
Quarter: 2010Q3

REPORT INFORMATION
  Report Type: 
  Country: None (occurrence: None)
  Receive Date: 20100929
  Receipt Date: 20100917
  Transmission Date: 20110219
  Serious: Yes (Disabling)
  Sender: FDA-Public Use
  Company Number: NO-PFIZER INC-2010117827

PATIENT
  Age: 29 Year
  Sex: Male
  Weight: 88 kg

DRUGS (2)
  1. ZELDOX [Suspect]
     Indication: BIPOLAR DISORDER
     Dosage: 20 MG, 2X/DAY
     Route: 048
     Dates: start: 20080401, end: 20100501
  2. ORFIRIL [Suspect]
     Indication: BIPOLAR DISORDER
     Dosage: 600 MG, 2X/DAY
     Route: 048
     Dates: start: 20080401, end: 20100501

REACTIONS (2)
  - INTRACRANIAL PRESSURE INCREASED [None]
  - PAPILLOEDEMA [None]
